FAERS Safety Report 9338867 (Version 8)
Quarter: 2014Q3

REPORT INFORMATION
  Report Type: Report from Study
  Country: CA (occurrence: CA)
  Receive Date: 20130610
  Receipt Date: 20140820
  Transmission Date: 20150326
  Serious: Yes (Hospitalization, Other)
  Sender: FDA-Public Use
  Company Number: CA-ROCHE-1093823

PATIENT
  Age: 70 Year
  Sex: Male

DRUGS (13)
  1. BENADRYL [Concomitant]
     Active Substance: DIPHENHYDRAMINE HYDROCHLORIDE
     Route: 048
     Dates: start: 20110128
  2. XELODA [Suspect]
     Active Substance: CAPECITABINE
     Indication: GASTRIC CANCER
     Route: 048
     Dates: start: 201002, end: 201006
  3. GINSENG TEA [Concomitant]
  4. IMIPENEM-CILASTATIN [Concomitant]
  5. COTAZYM [Concomitant]
     Active Substance: PANCRELIPASE
  6. VITAMIN C [Concomitant]
     Active Substance: ASCORBIC ACID
  7. VITAMIN B12 [Concomitant]
     Active Substance: CYANOCOBALAMIN
     Route: 058
  8. NYSTATIN. [Concomitant]
     Active Substance: NYSTATIN
  9. LACTULOSE. [Concomitant]
     Active Substance: LACTULOSE
  10. HERCEPTIN [Suspect]
     Active Substance: TRASTUZUMAB
     Indication: GASTROINTESTINAL CARCINOMA
     Route: 042
     Dates: start: 20110128, end: 20140325
  11. TYLENOL [Concomitant]
     Active Substance: ACETAMINOPHEN
     Route: 048
     Dates: start: 20110128
  12. PHOSPHATE-NOVARTIS [Concomitant]
  13. PERJETA [Suspect]
     Active Substance: PERTUZUMAB
     Indication: GASTRIC CANCER STAGE IV
     Route: 042
     Dates: start: 20130903

REACTIONS (10)
  - Tumour compression [Unknown]
  - Sepsis [Not Recovered/Not Resolved]
  - Malignant neoplasm progression [Unknown]
  - Abdominal pain [Unknown]
  - Recurrent cancer [Unknown]
  - Gallbladder disorder [Unknown]
  - Liver abscess [Unknown]
  - Anaemia [Unknown]
  - Pleural effusion [Unknown]
  - Portal vein thrombosis [Unknown]

NARRATIVE: CASE EVENT DATE: 20110403
